FAERS Safety Report 5444356-X (Version None)
Quarter: 2007Q3

REPORT INFORMATION
  Report Type: 
  Country: None (occurrence: None)
  Receive Date: 20070904
  Receipt Date: 20070904
  Transmission Date: 20080115
  Serious: Yes (Other)
  Sender: FDA-Public Use
  Company Number: None

PATIENT
  Age: 63 Year
  Sex: Female
  Weight: 68.0396 kg

DRUGS (1)
  1. REVITIO 20MG TABLETS PFIZER [Suspect]
     Indication: PULMONARY HYPERTENSION
     Dosage: 100 MG DAILY PO
     Route: 048
     Dates: start: 20061228, end: 20070828

REACTIONS (6)
  - DYSPNOEA [None]
  - MOBILITY DECREASED [None]
  - MYALGIA [None]
  - NAUSEA [None]
  - OEDEMA PERIPHERAL [None]
  - PHARMACEUTICAL PRODUCT COMPLAINT [None]
